FAERS Safety Report 11007938 (Version 3)
Quarter: 2015Q2

REPORT INFORMATION
  Report Type: Spontaneous
  Country: DZ (occurrence: DZ)
  Receive Date: 20150409
  Receipt Date: 20150505
  Transmission Date: 20150821
  Serious: Yes (Hospitalization)
  Sender: FDA-Public Use
  Company Number: DZ-ABBVIE-15K-003-1373076-00

PATIENT
  Age: 33 Year
  Sex: Female
  Weight: 67 kg

DRUGS (2)
  1. HUMIRA [Suspect]
     Active Substance: ADALIMUMAB
     Indication: COLITIS ULCERATIVE
     Dosage: ONE LOADING DOSE
     Route: 058
     Dates: start: 20141113, end: 20141113
  2. HUMIRA [Suspect]
     Active Substance: ADALIMUMAB
     Dosage: ONE DOSE
     Route: 058
     Dates: start: 20141127, end: 20141127

REACTIONS (12)
  - Pancytopenia [Not Recovered/Not Resolved]
  - Thrombocytopenia [Not Recovered/Not Resolved]
  - Polyneuropathy [Not Recovered/Not Resolved]
  - Paraesthesia [Not Recovered/Not Resolved]
  - Hypocalcaemia [Unknown]
  - Amyotrophy [Not Recovered/Not Resolved]
  - Hypoalbuminaemia [Unknown]
  - Musculoskeletal disorder [Not Recovered/Not Resolved]
  - Anaemia [Not Recovered/Not Resolved]
  - Haemorrhage subcutaneous [Not Recovered/Not Resolved]
  - Oedema [Unknown]
  - Dermatomyositis [Unknown]

NARRATIVE: CASE EVENT DATE: 201412
